FAERS Safety Report 9753695 (Version 1)
Quarter: 2013Q4

REPORT INFORMATION
  Report Type: Spontaneous
  Country: US (occurrence: US)
  Receive Date: 20131213
  Receipt Date: 20131213
  Transmission Date: 20140711
  Serious: No
  Sender: FDA-Public Use
  Company Number: US-GILEAD-2009-0026057

PATIENT
  Sex: Male
  Weight: 58.97 kg

DRUGS (5)
  1. LETAIRIS [Suspect]
     Indication: PULMONARY ARTERIAL HYPERTENSION
     Route: 048
     Dates: start: 20090318
  2. RANEXA [Concomitant]
  3. WARFARIN [Concomitant]
  4. FLOMAX [Concomitant]
  5. ACTOS [Concomitant]

REACTIONS (1)
  - Blood test abnormal [Unknown]
